FAERS Safety Report 9419959 (Version 1)
Quarter: 2013Q3

REPORT INFORMATION
  Report Type: Spontaneous
  Country: US (occurrence: None)
  Receive Date: 20130723
  Receipt Date: 20130723
  Transmission Date: 20140515
  Serious: No
  Sender: FDA-Public Use
  Company Number: None

PATIENT
  Age: 55 Year
  Sex: Female

DRUGS (1)
  1. BETASERON ? [Suspect]
     Indication: MULTIPLE SCLEROSIS
     Dosage: 40MG QOW SQ
     Route: 058
     Dates: start: 20120805, end: 20130715

REACTIONS (2)
  - Vision blurred [None]
  - Blood glucose increased [None]
